FAERS Safety Report 8507799 (Version 2)
Quarter: 2013Q2

REPORT INFORMATION
  Report Type: Spontaneous
  Country: US (occurrence: US)
  Receive Date: 20120412
  Receipt Date: 20130603
  Transmission Date: 20140414
  Serious: No
  Sender: FDA-Public Use
  Company Number: US-ASTRAZENECA-2011SE54604

PATIENT
  Age: 62 Year
  Sex: Female
  Weight: 74.8 kg

DRUGS (9)
  1. NEXIUM [Suspect]
     Indication: GASTROOESOPHAGEAL REFLUX DISEASE
     Route: 048
     Dates: start: 2009
  2. NEXIUM [Suspect]
     Indication: GASTROOESOPHAGEAL REFLUX DISEASE
     Route: 048
  3. NEXIUM [Suspect]
     Indication: GASTROOESOPHAGEAL REFLUX DISEASE
     Route: 048
  4. SEROQUEL [Suspect]
     Indication: MAJOR DEPRESSION
     Route: 048
     Dates: start: 2009
  5. SEROQUEL [Suspect]
     Indication: MAJOR DEPRESSION
     Route: 048
  6. LOSARTAN [Concomitant]
     Indication: BLOOD PRESSURE ABNORMAL
  7. NON DROWSY ALLERGY RELEASE MEDICATION [Concomitant]
     Indication: HYPERSENSITIVITY
  8. WARFARIN [Concomitant]
     Indication: ANTICOAGULANT THERAPY
  9. EFFEXOR XR [Concomitant]
     Indication: DEPRESSION

REACTIONS (5)
  - Oropharyngeal pain [Unknown]
  - Malaise [Unknown]
  - Hypersensitivity [Unknown]
  - Intentional drug misuse [Unknown]
  - Drug dose omission [Unknown]
